FAERS Safety Report 5656463-7 (Version None)
Quarter: 2008Q1

REPORT INFORMATION
  Report Type: 
  Country: None (occurrence: None)
  Receive Date: 20080309
  Receipt Date: 20080118
  Transmission Date: 20080703
  Serious: No
  Sender: FDA-Public Use
  Company Number: US-BAYER-200810359BCC

PATIENT
  Sex: Male
  Weight: 106 kg

DRUGS (7)
  1. ALEVE [Suspect]
     Indication: ARTHRALGIA
     Dosage: TOTAL DAILY DOSE: 880 MG  UNIT DOSE: 220 MG
     Route: 048
     Dates: start: 20070101
  2. NORCO [Concomitant]
  3. FOLIC ACID [Concomitant]
  4. FERROUS SULFATE TAB [Concomitant]
  5. HYDROCHLOROTHIAZIDE [Concomitant]
  6. FLOMAX [Concomitant]
  7. SITOSTEROL [Concomitant]

REACTIONS (1)
  - ARTHRALGIA [None]
